FAERS Safety Report 7985735-6 (Version None)
Quarter: 2011Q4

REPORT INFORMATION
  Report Type: 
  Country: None (occurrence: None)
  Receive Date: 20111216
  Receipt Date: 20111216
  Transmission Date: 20120403
  Serious: Yes (Other)
  Sender: FDA-Public Use
  Company Number: None

PATIENT
  Age: 50 Year
  Sex: Female
  Weight: 104.32 kg

DRUGS (1)
  1. CHORIONIC GONADOTROPIN [Suspect]

REACTIONS (4)
  - DEPRESSION [None]
  - CONDITION AGGRAVATED [None]
  - AGITATION [None]
  - ALOPECIA [None]
